FAERS Safety Report 6727298-9 (Version None)
Quarter: 2010Q2

REPORT INFORMATION
  Report Type: 
  Country: None (occurrence: None)
  Receive Date: 20100517
  Receipt Date: 20100510
  Transmission Date: 20101027
  Serious: Yes (Other)
  Sender: FDA-Public Use
  Company Number: US-JNJFOC-20100400909

PATIENT
  Sex: Male
  Weight: 20.41 kg

DRUGS (5)
  1. TOPAMAX [Suspect]
     Indication: DISTURBANCE IN SOCIAL BEHAVIOUR
     Route: 048
  2. TOPAMAX [Suspect]
     Route: 048
  3. TOPAMAX [Suspect]
     Route: 048
  4. RISPERDAL [Concomitant]
     Indication: DISTURBANCE IN SOCIAL BEHAVIOUR
     Route: 048
  5. CLONIDINE [Concomitant]
     Indication: DISTURBANCE IN SOCIAL BEHAVIOUR
     Route: 065

REACTIONS (4)
  - ANAEMIA MACROCYTIC [None]
  - FOLATE DEFICIENCY [None]
  - RASH [None]
  - VITAMIN B12 DEFICIENCY [None]
